FAERS Safety Report 7599981-7 (Version None)
Quarter: 2011Q3

REPORT INFORMATION
  Report Type: 
  Country: None (occurrence: None)
  Receive Date: 20110711
  Receipt Date: 20110707
  Transmission Date: 20111222
  Serious: No
  Sender: FDA-Public Use
  Company Number: US-PFIZER INC-2011153337

PATIENT
  Sex: Female
  Weight: 86.168 kg

DRUGS (3)
  1. VALIUM [Concomitant]
     Indication: ANXIETY
     Dosage: UNK
  2. CHANTIX [Suspect]
     Dosage: 1 MG, 2X/DAY
     Route: 048
  3. CHANTIX [Suspect]
     Indication: SMOKING CESSATION THERAPY
     Dosage: 0.5 MG, 1X/DAY
     Route: 048
     Dates: start: 20110611

REACTIONS (1)
  - BONE DISORDER [None]
